FAERS Safety Report 8176530-6 (Version None)
Quarter: 2012Q1

REPORT INFORMATION
  Report Type: 
  Country: None (occurrence: None)
  Receive Date: 20120301
  Receipt Date: 20120224
  Transmission Date: 20120608
  Serious: Yes (Other)
  Sender: FDA-Public Use
  Company Number: DE-PFIZER INC-2012050392

PATIENT
  Age: 76 Year
  Sex: Male

DRUGS (2)
  1. TOVIAZ [Suspect]
     Dosage: 4 MG, UNK
     Dates: start: 20120210
  2. TOVIAZ [Suspect]
     Dosage: 8 MG, UNK
     Dates: start: 20120201

REACTIONS (2)
  - SOMNOLENCE [None]
  - DRY MOUTH [None]
